FAERS Safety Report 8183142-7 (Version None)
Quarter: 2012Q1

REPORT INFORMATION
  Report Type: 
  Country: None (occurrence: None)
  Receive Date: 20120201
  Receipt Date: 20110119
  Transmission Date: 20120608
  Serious: No
  Sender: FDA-Public Use
  Company Number: 260687USA

PATIENT
  Age: 79 Year
  Sex: Female

DRUGS (5)
  1. PROPOXYPHENE NAPSYLATE AND ACETAMINOPHEN [Suspect]
     Indication: ABDOMINAL PAIN
     Dosage: (100 MG)
     Dates: start: 20100801, end: 20101217
  2. ATENOLOL [Concomitant]
  3. VERAPAMIL [Concomitant]
  4. ACETYLSALICYLIC ACID SRT [Concomitant]
  5. CLONAZEPAM [Concomitant]

REACTIONS (1)
  - PALPITATIONS [None]
